FAERS Safety Report 24412347 (Version 1)
Quarter: 2024Q4

REPORT INFORMATION
  Report Type: Spontaneous
  Country: US (occurrence: US)
  Receive Date: 20241008
  Receipt Date: 20241008
  Transmission Date: 20250115
  Serious: Yes (Death, Other)
  Sender: PFIZER
  Company Number: US-PFIZER INC-202400270340

PATIENT
  Age: 32 Year
  Sex: Female

DRUGS (2)
  1. SPIRONOLACTONE [Suspect]
     Active Substance: SPIRONOLACTONE
     Indication: Primary hyperaldosteronism
     Dosage: UNK
  2. MITOTANE [Suspect]
     Active Substance: MITOTANE
     Indication: Primary hyperaldosteronism
     Dosage: UNK

REACTIONS (1)
  - Drug ineffective [Fatal]
